FAERS Safety Report 25728189 (Version 4)
Quarter: 2025Q4

REPORT INFORMATION
  Report Type: Spontaneous
  Country: EU (occurrence: EU)
  Receive Date: 20250826
  Receipt Date: 20251125
  Transmission Date: 20260117
  Serious: No
  Sender: PFIZER
  Company Number: EU-PFIZER INC-202500168392

PATIENT
  Sex: Female

DRUGS (1)
  1. ENBREL [Suspect]
     Active Substance: ETANERCEPT
     Dosage: UNK
     Dates: start: 202504

REACTIONS (4)
  - Device delivery system issue [Unknown]
  - Needle issue [Unknown]
  - Device deployment issue [Unknown]
  - Drug dose omission by device [Unknown]
